FAERS Safety Report 15241384 (Version 2)
Quarter: 2018Q3

REPORT INFORMATION
  Report Type: Spontaneous
  Country: US (occurrence: US)
  Receive Date: 20180805
  Receipt Date: 20180808
  Transmission Date: 20181010
  Serious: Yes (Hospitalization, Other)
  Sender: FDA-Public Use
  Company Number: US-CONCORDIA PHARMACEUTICALS INC.-GSH201808-002779

PATIENT
  Age: 53 Year
  Sex: Female

DRUGS (4)
  1. STEROID [Concomitant]
     Active Substance: UNSPECIFIED INGREDIENT
     Indication: SYSTEMIC LUPUS ERYTHEMATOSUS
     Dosage: STEROID TAPER
  2. DIAZOXIDE [Suspect]
     Active Substance: DIAZOXIDE
     Indication: HYPERINSULINAEMIC HYPOGLYCAEMIA
  3. PREDNISONE. [Concomitant]
     Active Substance: PREDNISONE
  4. HYDROXYCHLOROQUINE [Suspect]
     Active Substance: HYDROXYCHLOROQUINE
     Indication: SYSTEMIC LUPUS ERYTHEMATOSUS

REACTIONS (6)
  - Presyncope [Recovered/Resolved]
  - Anxiety [Unknown]
  - Hyperinsulinaemic hypoglycaemia [Recovered/Resolved]
  - Tremor [Unknown]
  - Off label use [Unknown]
  - Confusional state [Unknown]
